FAERS Safety Report 13616779 (Version 1)
Quarter: 2017Q2

REPORT INFORMATION
  Report Type: Spontaneous
  Country: US (occurrence: US)
  Receive Date: 20170606
  Receipt Date: 20170606
  Transmission Date: 20170830
  Serious: No
  Sender: FDA-Public Use
  Company Number: US-SA-2016SA159034

PATIENT
  Age: 55 Year
  Sex: Female

DRUGS (1)
  1. LANTUS [Suspect]
     Active Substance: INSULIN GLARGINE
     Indication: ACCIDENTAL EXPOSURE TO PRODUCT
     Dosage: FORM : LIQUID?DOSE: 25 MG ONCE A DAY
     Route: 065

REACTIONS (1)
  - Laceration [Unknown]
